FAERS Safety Report 20878065 (Version 1)
Quarter: 2022Q2

REPORT INFORMATION
  Report Type: Spontaneous
  Country: US (occurrence: None)
  Receive Date: 20220525
  Receipt Date: 20220525
  Transmission Date: 20220721
  Serious: Yes (Disabling)
  Sender: FDA-Public Use
  Company Number: None

PATIENT
  Age: 7 Year
  Sex: Female
  Weight: 34.2 kg

DRUGS (4)
  1. HYDROXYZINE HYDROCHLORIDE [Suspect]
     Active Substance: HYDROXYZINE HYDROCHLORIDE
     Indication: Asthma
     Dosage: OTHER QUANTITY : 1 TABLET(S);?FREQUENCY : AT BEDTIME;?
     Route: 048
     Dates: start: 20220509, end: 20220510
  2. ALBUTEROL [Concomitant]
     Active Substance: ALBUTEROL
  3. FLINTSTONE COMPLETE CHEWABLE VITAMIN [Concomitant]
  4. ELDERBERRY CHEWABLE GUMMIES [Concomitant]

REACTIONS (4)
  - Arthropathy [None]
  - Dyskinesia [None]
  - Tic [None]
  - Loss of personal independence in daily activities [None]

NARRATIVE: CASE EVENT DATE: 20220510
